FAERS Safety Report 14909161 (Version 4)
Quarter: 2018Q4

REPORT INFORMATION
  Report Type: Spontaneous
  Country: US (occurrence: US)
  Receive Date: 20180517
  Receipt Date: 20181025
  Transmission Date: 20190204
  Serious: No
  Sender: FDA-Public Use
  Company Number: US-PFIZER INC-2018198226

PATIENT
  Age: 79 Year
  Sex: Female
  Weight: 78 kg

DRUGS (3)
  1. FLECTOR [Suspect]
     Active Substance: DICLOFENAC EPOLAMINE
     Indication: FIBROMYALGIA
  2. FLECTOR [Suspect]
     Active Substance: DICLOFENAC EPOLAMINE
     Indication: SPINAL COLUMN STENOSIS
     Dosage: UNK, AS NEEDED [CHANGE EVERY 12 HOURS]
     Route: 062
  3. FLECTOR [Suspect]
     Active Substance: DICLOFENAC EPOLAMINE
     Indication: ARTHRITIS

REACTIONS (7)
  - Application site pain [Not Recovered/Not Resolved]
  - Influenza [Unknown]
  - Hypoaesthesia [Unknown]
  - Product use in unapproved indication [Unknown]
  - Application site hypoaesthesia [Recovering/Resolving]
  - Vulvovaginal mycotic infection [Not Recovered/Not Resolved]
  - Malaise [Unknown]

NARRATIVE: CASE EVENT DATE: 201805
